FAERS Safety Report 4585726-1 (Version None)
Quarter: 2005Q1

REPORT INFORMATION
  Report Type: 
  Country: None (occurrence: None)
  Receive Date: 20050209
  Receipt Date: 20050128
  Transmission Date: 20050727
  Serious: Yes (Other)
  Sender: FDA-Public Use
  Company Number: 2004-03289

PATIENT
  Age: 74 Year
  Sex: Male

DRUGS (3)
  1. IMMUCYST (BCG - IT (CONNAUGHT)), AVENTIS PASTUER LTD. [Suspect]
     Indication: BLADDER DISORDER
     Dosage: 6 INSTILLATIONS (81.0 MG)
     Route: 043
     Dates: start: 20040706, end: 20040810
  2. TEGAFUR [Concomitant]
  3. ANTIBIOTIC [Concomitant]

REACTIONS (2)
  - NEUROGENIC BLADDER [None]
  - URINARY RETENTION [None]
